FAERS Safety Report 8272608-7 (Version None)
Quarter: 2012Q2

REPORT INFORMATION
  Report Type: 
  Country: None (occurrence: None)
  Receive Date: 20120410
  Receipt Date: 20111205
  Transmission Date: 20120825
  Serious: Yes (Death)
  Sender: FDA-Public Use
  Company Number: PHHY2011US109245

PATIENT
  Age: 38 Year
  Sex: Female

DRUGS (4)
  1. METOPROLOL TARTRATE [Suspect]
  2. ALPRAZOLAM [Suspect]
  3. ZOLPIDEM [Suspect]
  4. DILTIAZEM HCL [Suspect]

REACTIONS (1)
  - COMPLETED SUICIDE [None]
